FAERS Safety Report 10507178 (Version 4)
Quarter: 2021Q2

REPORT INFORMATION
  Report Type: Report from Study
  Country: GB (occurrence: GB)
  Receive Date: 20141009
  Receipt Date: 20210510
  Transmission Date: 20210716
  Serious: Yes (Hospitalization)
  Sender: FDA-Public Use
  Company Number: GB-PFIZER INC-2014274301

PATIENT
  Age: 65 Year
  Sex: Male
  Weight: 94 kg

DRUGS (10)
  1. EPIRUBICIN HCL [Suspect]
     Active Substance: EPIRUBICIN HYDROCHLORIDE
     Indication: GASTRIC CANCER
     Dosage: 95 MG, (FORM AND FREQUENCY: NOT REPORTED) DATE OF MOST RECENT ADMINISTRATION: 06/MAR/2012
     Route: 042
     Dates: start: 20120124
  2. XELODA [Suspect]
     Active Substance: CAPECITABINE
     Indication: GASTRIC CANCER
     Dosage: 2500 MG, DAILY DATE OF MOST RECENT ADMINISTRATION: 27/MAR/2012
     Route: 048
     Dates: start: 20120124
  3. AVASTIN [Suspect]
     Active Substance: BEVACIZUMAB
     Indication: GASTRIC CANCER
     Dosage: 743 MG,  (FREQUENCY: NOT REPORTED) (DATE OF MOST RECENT ADMINISTRATION: 06/MAR/2012)
     Route: 042
     Dates: start: 20120124
  4. CISPLATIN. [Suspect]
     Active Substance: CISPLATIN
     Indication: GASTRIC CANCER
     Dosage: 113 MG, (FORM AND FREQUENCY: NOT REPORTED)
     Route: 042
     Dates: start: 20120124
  5. ONDANSETRON HCL [Suspect]
     Active Substance: ONDANSETRON HYDROCHLORIDE
     Indication: GASTRIC CANCER
     Dosage: DAILY DOSE OF 16 MG (FORM AND FREQUENCY: NOT REPORTED) DATE OF LAST DOSE: 09/MAR/2012
     Route: 048
     Dates: start: 20120124
  6. DEXAMETHASONE. [Suspect]
     Active Substance: DEXAMETHASONE
     Indication: GASTRIC CANCER
     Dosage: 12 MG, DAILY
     Route: 048
     Dates: start: 20120124, end: 20120309
  7. APREPITANT. [Suspect]
     Active Substance: APREPITANT
     Indication: GASTRIC CANCER
     Dosage: 125 MG, DAILY
     Route: 048
     Dates: start: 20120124
  8. FUROSEMIDE. [Suspect]
     Active Substance: FUROSEMIDE
     Indication: GASTRIC CANCER
     Dosage: 40 MG, DAILY?DATE OF LAST DOSE: 06/MAR/2012
     Route: 048
     Dates: start: 20120124
  9. SIMVASTATIN. [Concomitant]
     Active Substance: SIMVASTATIN
     Dosage: 80 MG, UNK
     Route: 048
     Dates: start: 200503
  10. LISINOPRIL. [Concomitant]
     Active Substance: LISINOPRIL
     Dosage: 5 MG, UNK
     Route: 065
     Dates: start: 200705

REACTIONS (4)
  - Vomiting [Recovered/Resolved]
  - Diarrhoea [Recovered/Resolved]
  - Febrile neutropenia [Recovered/Resolved]
  - Abdominal sepsis [Recovered/Resolved]

NARRATIVE: CASE EVENT DATE: 20120313
